FAERS Safety Report 6123418-8 (Version None)
Quarter: 2009Q1

REPORT INFORMATION
  Report Type: 
  Country: None (occurrence: None)
  Receive Date: 20090318
  Receipt Date: 20090311
  Transmission Date: 20090719
  Serious: Yes (Other)
  Sender: FDA-Public Use
  Company Number: US-B.I. PHARMACEUTICALS,INC./RIDGEFIELD-2009-BP-03083BP

PATIENT
  Sex: Male

DRUGS (4)
  1. SPIRIVA [Suspect]
  2. COUMADIN [Concomitant]
  3. PLAVIX [Concomitant]
  4. ADVAIR HFA [Concomitant]

REACTIONS (1)
  - CARDIAC FAILURE CONGESTIVE [None]
